FAERS Safety Report 15344281 (Version 2)
Quarter: 2023Q2

REPORT INFORMATION
  Report Type: Spontaneous
  Country: FR (occurrence: FR)
  Receive Date: 20180903
  Receipt Date: 20230602
  Transmission Date: 20230722
  Serious: Yes (Hospitalization, Disabling, Other)
  Sender: FDA-Public Use
  Company Number: None

PATIENT
  Age: 37 Year
  Sex: Male

DRUGS (1)
  1. VARENICLINE TARTRATE [Suspect]
     Active Substance: VARENICLINE TARTRATE
     Indication: Smoking cessation therapy
     Dosage: UNK
     Route: 048
     Dates: start: 20080628

REACTIONS (42)
  - Psychotic disorder [Recovering/Resolving]
  - Schizophrenia [Not Recovered/Not Resolved]
  - Anxiety [Not Recovered/Not Resolved]
  - Sleep disorder [Not Recovered/Not Resolved]
  - Depression [Unknown]
  - Tunnel vision [Unknown]
  - Hallucination, visual [Unknown]
  - Suicidal ideation [Unknown]
  - Haemorrhage [Unknown]
  - Weight increased [Unknown]
  - Suicide attempt [Unknown]
  - Impaired work ability [Unknown]
  - Dysaesthesia [Unknown]
  - Eye movement disorder [Unknown]
  - Road traffic accident [Unknown]
  - Limb injury [Unknown]
  - Varicose vein [Unknown]
  - Dissociative disorder [Unknown]
  - Thinking abnormal [Unknown]
  - Delusional disorder, mixed type [Unknown]
  - Initial insomnia [Unknown]
  - Visual impairment [Unknown]
  - Tachycardia [Recovered/Resolved]
  - Hyperhidrosis [Recovered/Resolved]
  - Obstructive sleep apnoea syndrome [Unknown]
  - Visual field defect [Unknown]
  - Feeling abnormal [Unknown]
  - Movement disorder [Unknown]
  - Speech disorder [Unknown]
  - Affect lability [Unknown]
  - Asthenia [Unknown]
  - Hypersomnia [Unknown]
  - Parasomnia [Unknown]
  - Apathy [Unknown]
  - Reduced facial expression [Unknown]
  - Panic attack [Unknown]
  - Tremor [Unknown]
  - Back pain [Unknown]
  - Affective disorder [Unknown]
  - Anger [Unknown]
  - Feeling hot [Unknown]
  - Fall [Unknown]

NARRATIVE: CASE EVENT DATE: 20080101
